FAERS Safety Report 9067163 (Version 1)
Quarter: 2013Q1

REPORT INFORMATION
  Report Type: Spontaneous
  Country: IN (occurrence: IN)
  Receive Date: 20130214
  Receipt Date: 20130214
  Transmission Date: 20140127
  Serious: Yes (Hospitalization)
  Sender: FDA-Public Use
  Company Number: PHHY2013IN011354

PATIENT
  Age: 36 None
  Sex: Male

DRUGS (24)
  1. SIMULECT [Suspect]
     Indication: RENAL TRANSPLANT
     Dosage: 1 DF, UNK
  2. PREDNISOLONE [Concomitant]
     Indication: RENAL TRANSPLANT
     Dosage: 20 MG, QD (AFTER BREAKFAST)
  3. MYCOPHENOLATE MOFETIL [Concomitant]
     Indication: RENAL TRANSPLANT
  4. RENFOR [Concomitant]
     Dosage: 1080 MG (IN THE MORNING 8 AM) AND 1260 MF IN EVENING (8PM)
  5. RENFOR [Concomitant]
     Dosage: RE-ADJUSTED TO 1080/1260
  6. PANGRAF [Concomitant]
     Dosage: 3.0 MG AT 8.30AM AND 3.5MG AT 8.30PM
  7. VALCYTE [Concomitant]
     Dosage: 450 MG, QD
  8. SEPTRAN [Concomitant]
     Dosage: 480 MG, QD
  9. STAMLO [Concomitant]
     Dosage: 7.5 MG, QD
  10. ATORVAST [Concomitant]
     Dosage: 10 MG, ONCE AT NIGHT
  11. LIVOGEN [Concomitant]
     Dosage: 2 DF, QD (02 HOURS AFTER LUNCH)
  12. HUMAN ACTRAPID [Concomitant]
     Dosage: 12-14-8 U TO BE ADJUSTED ACORDING TO SELF MONITORING OF BLOOD GLUCOSE.
  13. MEZOLAM//MIDAZOLAM HYDROCHLORIDE [Concomitant]
     Dates: start: 20121129
  14. TRACRIUM [Concomitant]
     Dates: start: 20121129
  15. DIPRIVAN [Concomitant]
     Dates: start: 20121129
  16. SALINE [Concomitant]
     Dates: start: 20121129
  17. PHENPRES [Concomitant]
     Dosage: 10 MG, UNK
     Dates: start: 20121129
  18. LASIX [Concomitant]
     Dosage: 10 MG, UNK
     Dates: start: 20121129
  19. OXYGEN [Concomitant]
  20. WYSOLONE [Concomitant]
     Dosage: 20 MG, UNK
     Dates: start: 20121130
  21. SOLU-MEDROL [Concomitant]
     Dates: start: 20121130
  22. HISTAC [Concomitant]
     Dosage: 25 MG, UNK
     Dates: start: 20121130
  23. DEXTROSE [Concomitant]
     Dates: start: 20121130
  24. NUMOL [Concomitant]
     Dates: start: 20121130

REACTIONS (15)
  - Kidney fibrosis [Unknown]
  - Glomerulonephritis [Unknown]
  - Tubulointerstitial nephritis [Unknown]
  - Renal tubular necrosis [Unknown]
  - Capillaritis [Unknown]
  - Kidney transplant rejection [Unknown]
  - Blood creatinine increased [Unknown]
  - Complications of transplanted kidney [Unknown]
  - Anaemia [Unknown]
  - Anisocytosis [Unknown]
  - Macrocytosis [Unknown]
  - Blood sodium decreased [Unknown]
  - White blood cell count increased [Unknown]
  - Prothrombin consumption time shortened [Unknown]
  - Blood alkaline phosphatase decreased [Unknown]
